FAERS Safety Report 4788724-8 (Version None)
Quarter: 2005Q4

REPORT INFORMATION
  Report Type: 
  Country: None (occurrence: None)
  Receive Date: 20051005
  Receipt Date: 20050808
  Transmission Date: 20060501
  Serious: Yes (Other)
  Sender: FDA-Public Use
  Company Number: GB-ROCHE-413201

PATIENT
  Age: 42 Year
  Sex: Female
  Weight: 94.5 kg

DRUGS (1)
  1. XENICAL [Suspect]
     Indication: OBESITY
     Route: 048
     Dates: start: 20050614, end: 20050805

REACTIONS (2)
  - ABDOMINAL PAIN UPPER [None]
  - HAEMATOCHEZIA [None]
